FAERS Safety Report 6652512-8 (Version None)
Quarter: 2010Q1

REPORT INFORMATION
  Report Type: 
  Country: None (occurrence: None)
  Receive Date: 20100325
  Receipt Date: 20100325
  Transmission Date: 20100710
  Serious: Yes (Disabling, Other)
  Sender: FDA-Public Use
  Company Number: None

PATIENT
  Sex: Female
  Weight: 87.5442 kg

DRUGS (3)
  1. ZICAM ORAL MIST [Suspect]
     Indication: NASAL CONGESTION
     Dosage: 2/DAY 9 OR 10 MOS.
  2. ZICAM ORAL MIST [Suspect]
     Indication: NASOPHARYNGITIS
     Dosage: 2/DAY 9 OR 10 MOS.
  3. ZICAM ORAL MIST [Suspect]

REACTIONS (2)
  - AGEUSIA [None]
  - HYPOSMIA [None]
